FAERS Safety Report 7105460 (Version 3)
Quarter: 2015Q1

REPORT INFORMATION
  Report Type: Spontaneous
  Country: NZ (occurrence: NZ)
  Receive Date: 20090904
  Receipt Date: 20150310
  Transmission Date: 20150721
  Serious: Yes (Disabling, Other)
  Sender: FDA-Public Use
  Company Number: PHHY2009NZ33249

PATIENT
  Age: 77 Year
  Sex: Male

DRUGS (10)
  1. FRUSEMIDE [Concomitant]
     Active Substance: FUROSEMIDE
     Indication: FLUID RETENTION
     Dosage: 40-80 MG DAILY
     Route: 048
     Dates: start: 20090329
  2. OMEPRAZOLE. [Concomitant]
     Active Substance: OMEPRAZOLE
     Indication: HIATUS HERNIA
     Dosage: 20 MG DAILY
     Route: 048
     Dates: start: 20071012, end: 20071019
  3. PHOSPHATE [Concomitant]
     Active Substance: UNSPECIFIED INGREDIENT
     Dosage: 1 DF, QD
     Route: 048
  4. TASIGNA [Suspect]
     Active Substance: NILOTINIB
     Indication: CHRONIC MYELOID LEUKAEMIA
     Dosage: 400 MG, BID
     Route: 048
     Dates: start: 20070927, end: 20090108
  5. SLOW-K [Concomitant]
     Active Substance: POTASSIUM CHLORIDE
     Indication: PRODUCT USED FOR UNKNOWN INDICATION
     Dosage: TDS
     Route: 048
  6. TRANSFUSIONS [Concomitant]
     Active Substance: UNSPECIFIED INGREDIENT
     Indication: PRODUCT USED FOR UNKNOWN INDICATION
  7. PROPOFAN [Concomitant]
     Indication: PRODUCT USED FOR UNKNOWN INDICATION
     Dosage: UNK
     Route: 058
  8. TASIGNA [Suspect]
     Active Substance: NILOTINIB
     Route: 065
  9. ALLOPURINOL. [Concomitant]
     Active Substance: ALLOPURINOL
     Indication: GOUT
     Dosage: 300 MG DAILY
     Route: 048
  10. METFORMIN [Concomitant]
     Active Substance: METFORMIN HYDROCHLORIDE
     Indication: PRODUCT USED FOR UNKNOWN INDICATION
     Dosage: BID
     Route: 048

REACTIONS (10)
  - Gene mutation identification test positive [Unknown]
  - Cardiac failure [Not Recovered/Not Resolved]
  - Glomerular filtration rate decreased [Unknown]
  - Gamma-glutamyltransferase increased [Unknown]
  - Electrocardiogram QT prolonged [Recovered/Resolved]
  - Diabetes mellitus [Recovered/Resolved]
  - Anaemia [Recovered/Resolved]
  - Fluid retention [Recovering/Resolving]
  - Blood creatinine increased [Unknown]
  - Pancytopenia [Recovered/Resolved]

NARRATIVE: CASE EVENT DATE: 20071011
